FAERS Safety Report 7603177-X (Version None)
Quarter: 2011Q3

REPORT INFORMATION
  Report Type: 
  Country: None (occurrence: None)
  Receive Date: 20110712
  Receipt Date: 20110630
  Transmission Date: 20111222
  Serious: Yes (Death)
  Sender: FDA-Public Use
  Company Number: MA-PFIZER INC-2011143811

PATIENT
  Age: 38 Year
  Sex: Male

DRUGS (6)
  1. METHYLPREDNISOLONE [Suspect]
     Indication: AMYLOIDOSIS
  2. CYCLOPHOSPHAMIDE [Suspect]
     Indication: AMYLOIDOSIS
  3. METHYLPREDNISOLONE [Suspect]
     Indication: PUSTULAR PSORIASIS
     Route: 040
  4. CYCLOPHOSPHAMIDE [Suspect]
     Indication: PUSTULAR PSORIASIS
     Route: 040
  5. AZATHIOPRINE [Suspect]
     Indication: AMYLOIDOSIS
  6. AZATHIOPRINE [Suspect]
     Indication: PUSTULAR PSORIASIS
     Route: 040

REACTIONS (1)
  - RENAL IMPAIRMENT [None]
